FAERS Safety Report 15648224 (Version 1)
Quarter: 2018Q4

REPORT INFORMATION
  Report Type: Report from Study
  Country: DE (occurrence: DE)
  Receive Date: 20181122
  Receipt Date: 20181122
  Transmission Date: 20190205
  Serious: Yes (Hospitalization)
  Sender: FDA-Public Use
  Company Number: DE-BAUSCH-BL-2018-032122

PATIENT
  Sex: Female
  Weight: 60 kg

DRUGS (6)
  1. BONDRONAT [Concomitant]
     Active Substance: IBANDRONATE SODIUM
     Indication: RENAL FAILURE
     Dates: start: 20130611
  2. ACICLOVIR ARISTO [Concomitant]
     Indication: PROPHYLAXIS
     Dates: start: 20170822
  3. DEXAMETHASONE. [Suspect]
     Active Substance: DEXAMETHASONE
     Route: 065
     Dates: start: 20170829, end: 20170831
  4. CARFILZOMIB [Suspect]
     Active Substance: CARFILZOMIB
     Route: 042
     Dates: start: 20170829, end: 20170831
  5. DEXAMETHASONE. [Suspect]
     Active Substance: DEXAMETHASONE
     Indication: PLASMA CELL MYELOMA
     Route: 065
     Dates: start: 20170822, end: 20170823
  6. CARFILZOMIB [Suspect]
     Active Substance: CARFILZOMIB
     Indication: PLASMA CELL MYELOMA
     Route: 042
     Dates: start: 20170822, end: 20170823

REACTIONS (1)
  - Pyrexia [Recovered/Resolved]

NARRATIVE: CASE EVENT DATE: 20170830
